FAERS Safety Report 14949887 (Version 3)
Quarter: 2019Q2

REPORT INFORMATION
  Report Type: Spontaneous
  Country: US (occurrence: US)
  Receive Date: 20180530
  Receipt Date: 20190513
  Transmission Date: 20190711
  Serious: Yes (Hospitalization)
  Sender: FDA-Public Use
  Company Number: US-ASTRAZENECA-2018SE59050

PATIENT
  Age: 555 Month
  Sex: Female
  Weight: 63.5 kg

DRUGS (9)
  1. BEVESPI AEROSPHERE [Suspect]
     Active Substance: FORMOTEROL FUMARATE\GLYCOPYRROLATE
     Indication: CHRONIC OBSTRUCTIVE PULMONARY DISEASE
     Dosage: 9/4.6 UG, TWO PUFFS TWICE DAILY
     Route: 055
     Dates: start: 20180412
  2. TRAMADOL. [Concomitant]
     Active Substance: TRAMADOL
     Indication: PAIN
     Dosage: AS REQUIRED
     Route: 048
     Dates: start: 2010
  3. DALIRESP [Suspect]
     Active Substance: ROFLUMILAST
     Indication: CHRONIC OBSTRUCTIVE PULMONARY DISEASE
     Route: 048
     Dates: start: 20190426, end: 20190503
  4. DALIRESP [Suspect]
     Active Substance: ROFLUMILAST
     Indication: EOSINOPHIL COUNT INCREASED
     Route: 048
     Dates: start: 20190426, end: 20190503
  5. ALBUTEROL SULFATE. [Concomitant]
     Active Substance: ALBUTEROL SULFATE
     Indication: DYSPNOEA
     Dosage: TWO PUFFS AS NEEDED
  6. SYMBICORT [Suspect]
     Active Substance: BUDESONIDE\FORMOTEROL FUMARATE DIHYDRATE
     Indication: DYSPNOEA
     Dosage: 160/4.5 UG, TWO PUFFS, TWICE A DAY
     Route: 055
     Dates: start: 2010, end: 20190423
  7. PROAIR HFA [Concomitant]
     Active Substance: ALBUTEROL SULFATE
     Indication: CHRONIC OBSTRUCTIVE PULMONARY DISEASE
     Dosage: 90.0UG/INHAL AS REQUIRED
     Route: 055
     Dates: start: 2010
  8. TRAZODONE [Concomitant]
     Active Substance: TRAZODONE HYDROCHLORIDE
     Indication: INSOMNIA
     Route: 048
     Dates: start: 2010
  9. FLEXERIL [Concomitant]
     Active Substance: CYCLOBENZAPRINE HYDROCHLORIDE
     Indication: PAIN
     Dosage: 5.0MG AS REQUIRED
     Route: 048
     Dates: start: 2010

REACTIONS (32)
  - Respiratory distress [Unknown]
  - Nail bed disorder [Unknown]
  - Dyspnoea [Not Recovered/Not Resolved]
  - Lung disorder [Unknown]
  - Glaucoma [Recovered/Resolved]
  - Constipation [Unknown]
  - Eye swelling [Not Recovered/Not Resolved]
  - Eating disorder [Unknown]
  - Swelling [Unknown]
  - Malaise [Unknown]
  - Diarrhoea [Unknown]
  - Cough [Unknown]
  - Dyspnoea exertional [Not Recovered/Not Resolved]
  - Blood pressure increased [Unknown]
  - Dysphonia [Unknown]
  - Eye pain [Recovering/Resolving]
  - Noninfective encephalitis [Unknown]
  - Insurance issue [Unknown]
  - Ill-defined disorder [Unknown]
  - Fall [Unknown]
  - Lacrimation increased [Recovering/Resolving]
  - Oropharyngeal pain [Unknown]
  - Visual impairment [Unknown]
  - Ataxia [Unknown]
  - Coating in mouth [Recovered/Resolved]
  - Eyelid margin crusting [Recovering/Resolving]
  - Oxygen saturation abnormal [Not Recovered/Not Resolved]
  - Chest discomfort [Not Recovered/Not Resolved]
  - Eye pruritus [Unknown]
  - Migraine [Not Recovered/Not Resolved]
  - Secretion discharge [Unknown]
  - Product dose omission [Unknown]

NARRATIVE: CASE EVENT DATE: 201005
